FAERS Safety Report 18629893 (Version 1)
Quarter: 2020Q4

REPORT INFORMATION
  Report Type: Spontaneous
  Country: US (occurrence: US)
  Receive Date: 20201217
  Receipt Date: 20201217
  Transmission Date: 20210114
  Serious: No
  Sender: FDA-Public Use
  Company Number: US-SCILEX PHARMACEUTICALS INC.-2020SCX00043

PATIENT
  Sex: Female

DRUGS (2)
  1. NITROFURANTOIN MONOHYDRATE / MACROCRYSTALS (GENERIC FOR MACROBID) [Suspect]
     Active Substance: NITROFURANTOIN\NITROFURANTOIN MONOHYDRATE
     Dosage: UNK
     Dates: start: 20201104, end: 20201108
  2. ZTLIDO [Suspect]
     Active Substance: LIDOCAINE
     Dosage: UNK
     Dates: start: 20201104, end: 20201108

REACTIONS (1)
  - Anxiety [Unknown]

NARRATIVE: CASE EVENT DATE: 20201104
